FAERS Safety Report 11680986 (Version 3)
Quarter: 2015Q4

REPORT INFORMATION
  Report Type: Spontaneous
  Country: US (occurrence: US)
  Receive Date: 20151027
  Receipt Date: 20151110
  Transmission Date: 20160304
  Serious: No
  Sender: FDA-Public Use
  Company Number: US-ELI_LILLY_AND_COMPANY-US201008007850

PATIENT
  Sex: Female

DRUGS (3)
  1. FORTEO [Suspect]
     Active Substance: TERIPARATIDE
     Dosage: 20 UG, QD
     Route: 065
  2. FORTEO [Suspect]
     Active Substance: TERIPARATIDE
     Indication: OSTEOPOROSIS
     Dosage: 20 UG, QD
     Route: 065
  3. FORTEO [Suspect]
     Active Substance: TERIPARATIDE
     Dosage: 20 UG, QD

REACTIONS (13)
  - Weight fluctuation [Unknown]
  - Musculoskeletal stiffness [Recovering/Resolving]
  - Injection site pain [Unknown]
  - Intervertebral disc disorder [Unknown]
  - Thyroid disorder [Unknown]
  - Sleep disorder due to a general medical condition [Unknown]
  - Fatigue [Unknown]
  - Blood glucose fluctuation [Unknown]
  - Joint stiffness [Recovering/Resolving]
  - Body height decreased [Not Recovered/Not Resolved]
  - Pain [Unknown]
  - Nerve compression [Unknown]
  - Nasopharyngitis [Unknown]
